FAERS Safety Report 18223482 (Version 2)
Quarter: 2020Q3

REPORT INFORMATION
  Report Type: Spontaneous
  Country: FR (occurrence: FR)
  Receive Date: 20200902
  Receipt Date: 20200903
  Transmission Date: 20201103
  Serious: Yes (Hospitalization, Other)
  Sender: FDA-Public Use
  Company Number: FR-GILEAD-2020-0492884

PATIENT
  Age: 69 Year
  Sex: Male
  Weight: 50 kg

DRUGS (5)
  1. FLUDARABINE PHOSPHATE. [Concomitant]
     Active Substance: FLUDARABINE PHOSPHATE
  2. HEPARINE CHOAY [Concomitant]
     Active Substance: HEPARIN SODIUM
     Indication: SUPERIOR VENA CAVA SYNDROME
     Route: 041
     Dates: end: 20200806
  3. YESCARTA [Suspect]
     Active Substance: AXICABTAGENE CILOLEUCEL
     Indication: B-CELL LYMPHOMA REFRACTORY
     Route: 042
     Dates: start: 20200728, end: 20200728
  4. CEFEPIME GERDA 2 G, POUDRE POUR SOLUTION INJECTABLE (IV) ? [Suspect]
     Active Substance: CEFEPIME HYDROCHLORIDE
     Indication: OPPORTUNISTIC INFECTION PROPHYLAXIS
     Route: 041
     Dates: start: 20200802, end: 20200805
  5. CYCLOPHOSPHAMIDE. [Concomitant]
     Active Substance: CYCLOPHOSPHAMIDE

REACTIONS (3)
  - Drug level above therapeutic [Recovered/Resolved]
  - Immune effector cell-associated neurotoxicity syndrome [Recovered/Resolved]
  - Cytokine release syndrome [Recovered/Resolved]

NARRATIVE: CASE EVENT DATE: 20200802
